FAERS Safety Report 12228158 (Version 1)
Quarter: 2016Q1

REPORT INFORMATION
  Report Type: Spontaneous
  Country: US (occurrence: None)
  Receive Date: 20160330
  Receipt Date: 20160330
  Transmission Date: 20160526
  Serious: Yes (Other)
  Sender: FDA-Public Use
  Company Number: None

PATIENT
  Age: 57 Year
  Sex: Male
  Weight: 104.33 kg

DRUGS (3)
  1. OMEPRAZOLE. [Concomitant]
     Active Substance: OMEPRAZOLE
  2. MOXIFLOXACIN HCL 400MG TABS AUROBINDO PHARMA [Suspect]
     Active Substance: MOXIFLOXACIN
     Indication: PNEUMONIA
     Route: 048
     Dates: start: 20160309, end: 20160315
  3. MULTI-VIT [Concomitant]
     Active Substance: VITAMINS

REACTIONS (5)
  - Hypoaesthesia [None]
  - Heart rate irregular [None]
  - Sleep disorder [None]
  - Heart rate increased [None]
  - Insomnia [None]

NARRATIVE: CASE EVENT DATE: 20160315
